FAERS Safety Report 22067595 (Version 3)
Quarter: 2023Q1

REPORT INFORMATION
  Report Type: Report from Study
  Country: MX (occurrence: MX)
  Receive Date: 20230307
  Receipt Date: 20230331
  Transmission Date: 20230418
  Serious: Yes (Hospitalization)
  Sender: FDA-Public Use
  Company Number: MX-002147023-NVSC2022MX198103

PATIENT
  Age: 42 Year
  Sex: Female
  Weight: 64 kg

DRUGS (1)
  1. GILENYA [Suspect]
     Active Substance: FINGOLIMOD HYDROCHLORIDE
     Indication: Multiple sclerosis
     Dosage: 0.5 MG, QD, BY MOUTH
     Route: 048
     Dates: start: 202205

REACTIONS (13)
  - Haemorrhage [Not Recovered/Not Resolved]
  - Leiomyoma [Not Recovered/Not Resolved]
  - Anaemia [Not Recovered/Not Resolved]
  - Pallor [Unknown]
  - Muscle rigidity [Not Recovered/Not Resolved]
  - Weight increased [Not Recovered/Not Resolved]
  - Mood altered [Not Recovered/Not Resolved]
  - Stress [Unknown]
  - Crying [Unknown]
  - Memory impairment [Not Recovered/Not Resolved]
  - Nervousness [Unknown]
  - Depression [Unknown]
  - Weight decreased [Unknown]

NARRATIVE: CASE EVENT DATE: 20220801
